FAERS Safety Report 9214989 (Version 1)
Quarter: 2013Q2

REPORT INFORMATION
  Report Type: Report from Study
  Country: US (occurrence: US)
  Receive Date: 20130405
  Receipt Date: 20130405
  Transmission Date: 20140414
  Serious: Yes (Hospitalization, Other)
  Sender: FDA-Public Use
  Company Number: US-ABBOTT-13P-163-1043119-00

PATIENT
  Sex: Female
  Weight: 70.37 kg

DRUGS (4)
  1. HUMIRA [Suspect]
     Indication: PSORIATIC ARTHROPATHY
     Dates: start: 201105
  2. POTASSIUM [Concomitant]
     Indication: PRODUCT USED FOR UNKNOWN INDICATION
  3. TOPROL [Concomitant]
     Indication: PRODUCT USED FOR UNKNOWN INDICATION
  4. PREMARIN [Concomitant]
     Indication: PRODUCT USED FOR UNKNOWN INDICATION

REACTIONS (2)
  - Coronary artery occlusion [Recovered/Resolved]
  - Coronary artery occlusion [Unknown]
